FAERS Safety Report 12695819 (Version 1)
Quarter: 2016Q3

REPORT INFORMATION
  Report Type: Spontaneous
  Country: FR (occurrence: FR)
  Receive Date: 20160829
  Receipt Date: 20160829
  Transmission Date: 20161109
  Serious: Yes (Hospitalization)
  Sender: FDA-Public Use
  Company Number: FR-PFIZER INC-2016397096

PATIENT
  Age: 62 Year
  Sex: Male

DRUGS (8)
  1. VIMPAT [Concomitant]
     Active Substance: LACOSAMIDE
  2. LEVOTHYROX [Concomitant]
     Active Substance: LEVOTHYROXINE
  3. PARACETAMOL [Concomitant]
     Active Substance: ACETAMINOPHEN
  4. RANITIDINE. [Concomitant]
     Active Substance: RANITIDINE
  5. DALACINE [Suspect]
     Active Substance: CLINDAMYCIN HYDROCHLORIDE
     Indication: BACTERIAL INFECTION
     Dosage: 600 MG, 3X/DAY
     Route: 048
     Dates: start: 20160621, end: 20160713
  6. CANDESARTAN [Concomitant]
     Active Substance: CANDESARTAN
  7. TEMERIT [Concomitant]
     Active Substance: NEBIVOLOL
  8. LEVETIRACETAM. [Concomitant]
     Active Substance: LEVETIRACETAM

REACTIONS (3)
  - Rash [Recovered/Resolved]
  - Pruritus [Recovered/Resolved]
  - Pyrexia [Recovered/Resolved]

NARRATIVE: CASE EVENT DATE: 20160711
